FAERS Safety Report 20743302 (Version 2)
Quarter: 2024Q1

REPORT INFORMATION
  Report Type: Spontaneous
  Country: US (occurrence: US)
  Receive Date: 20220425
  Receipt Date: 20240229
  Transmission Date: 20240410
  Serious: Yes (Other)
  Sender: FDA-Public Use
  Company Number: US-CIPLA (EU) LIMITED-2022US02291

PATIENT

DRUGS (3)
  1. ALBUTEROL [Suspect]
     Active Substance: ALBUTEROL
     Indication: Asthma
     Dosage: 2 PUFFS AT A TIME, IF NOT RESOLVED, REPEAT THE SAME PROCESS AND ONCE EVERY 3-4 HOURS
     Route: 065
     Dates: start: 202110, end: 2022
  2. QVAR [Concomitant]
     Active Substance: BECLOMETHASONE DIPROPIONATE
     Indication: Asthma
     Dosage: UNK, BID, WHEN NEEDED THRICE DAILY, SINCE 3 YEARS OLD
     Route: 065
  3. ALBUTEROL [Concomitant]
     Active Substance: ALBUTEROL
     Indication: Asthma
     Dosage: UNK, ONLY WHEN RESPIRATORY PROBLEM WAS NOT IN CONTROL,SINCE 3 YEARS OLD
     Route: 065

REACTIONS (5)
  - Dyspnoea [Recovering/Resolving]
  - Respiratory distress [Recovering/Resolving]
  - Incorrect dose administered [Not Recovered/Not Resolved]
  - Circumstance or information capable of leading to medication error [Unknown]
  - Product use complaint [Unknown]

NARRATIVE: CASE EVENT DATE: 20211001
